FAERS Safety Report 6610541-4 (Version None)
Quarter: 2010Q1

REPORT INFORMATION
  Report Type: 
  Country: None (occurrence: None)
  Receive Date: 20100302
  Receipt Date: 20100219
  Transmission Date: 20100710
  Serious: Yes (Other)
  Sender: FDA-Public Use
  Company Number: B0634920A

PATIENT

DRUGS (1)
  1. NIQUITIN CQ CLEAR 21MG [Suspect]
     Indication: DRUG USE FOR UNKNOWN INDICATION
     Dosage: 21MG UNKNOWN
     Route: 062

REACTIONS (9)
  - APHASIA [None]
  - ASTHENIA [None]
  - ASTHENOPIA [None]
  - DIARRHOEA [None]
  - FEELING COLD [None]
  - FEELING HOT [None]
  - HYPERHIDROSIS [None]
  - PARAESTHESIA [None]
  - VOMITING [None]
